FAERS Safety Report 9070979 (Version 1)
Quarter: 2013Q1

REPORT INFORMATION
  Report Type: Report from Study
  Country: JP (occurrence: JP)
  Receive Date: 20130129
  Receipt Date: 20130129
  Transmission Date: 20140127
  Serious: Yes (Other)
  Sender: FDA-Public Use
  Company Number: JP-GLAXOSMITHKLINE-B0860756A

PATIENT
  Age: 34 None
  Sex: Female

DRUGS (5)
  1. PAXIL [Suspect]
     Indication: SOCIAL PHOBIA
     Dosage: 10MG PER DAY
     Route: 048
     Dates: start: 20110920, end: 20111004
  2. MEILAX [Concomitant]
     Indication: SOCIAL PHOBIA
     Route: 048
     Dates: start: 20090324
  3. BROTIZOLAM [Concomitant]
     Route: 048
  4. BIO-THREE [Concomitant]
     Route: 048
  5. NAUZELIN [Concomitant]
     Route: 048

REACTIONS (2)
  - Laryngeal obstruction [Recovered/Resolved]
  - Nausea [Recovered/Resolved]
